FAERS Safety Report 6774174-1 (Version None)
Quarter: 2010Q2

REPORT INFORMATION
  Report Type: 
  Country: None (occurrence: None)
  Receive Date: 20100616
  Receipt Date: 20100616
  Transmission Date: 20101027
  Serious: Yes (Other)
  Sender: FDA-Public Use
  Company Number: None

PATIENT
  Age: 53 Year
  Sex: Female

DRUGS (2)
  1. SAPHRIS [Suspect]
     Indication: AFFECTIVE DISORDER
     Dosage: 10MG BID PO, 2 DOSES ONLY
     Route: 048
     Dates: start: 20100615, end: 20100615
  2. SAPHRIS [Suspect]
     Indication: ANXIETY
     Dosage: 10MG BID PO, 2 DOSES ONLY
     Route: 048
     Dates: start: 20100615, end: 20100615

REACTIONS (3)
  - ENERGY INCREASED [None]
  - FEELING ABNORMAL [None]
  - SOMNOLENCE [None]
